FAERS Safety Report 9434248 (Version 1)
Quarter: 2013Q3

REPORT INFORMATION
  Report Type: Spontaneous
  Country: ES (occurrence: ES)
  Receive Date: 20130801
  Receipt Date: 20130801
  Transmission Date: 20140515
  Serious: Yes (Death, Other)
  Sender: FDA-Public Use
  Company Number: PHHY2013ES079753

PATIENT
  Age: 44 Year
  Sex: Male

DRUGS (23)
  1. CICLOSPORIN [Suspect]
     Indication: PROPHYLAXIS AGAINST GRAFT VERSUS HOST DISEASE
  2. METHOTREXATE [Suspect]
     Indication: PROPHYLAXIS AGAINST GRAFT VERSUS HOST DISEASE
  3. CO-TRIMOXAZOLE [Suspect]
     Indication: INFECTION PROPHYLAXIS
  4. ACICLOVIR [Suspect]
     Indication: INFECTION PROPHYLAXIS
  5. TACROLIMUS [Suspect]
     Indication: ACUTE GRAFT VERSUS HOST DISEASE IN SKIN
  6. LAMIVUDINE [Suspect]
     Indication: HIV INFECTION CDC CATEGORY C3
     Dates: start: 2000
  7. CORTICOSTEROIDS [Suspect]
     Indication: ACUTE GRAFT VERSUS HOST DISEASE IN SKIN
  8. QUINOLONES [Suspect]
     Indication: INFECTION PROPHYLAXIS
  9. ENFUVIRTIDE [Suspect]
     Indication: HIV INFECTION CDC CATEGORY C3
  10. ABACAVIR [Suspect]
     Indication: HIV INFECTION CDC CATEGORY C3
  11. DIDANOSINE [Suspect]
     Indication: HIV INFECTION CDC CATEGORY C3
  12. RITUXIMAB [Concomitant]
     Indication: DIFFUSE LARGE B-CELL LYMPHOMA
  13. ITRACONAZOLE [Concomitant]
     Indication: INFECTION PROPHYLAXIS
  14. CYCLOPHOSPHAMIDE [Concomitant]
     Indication: DIFFUSE LARGE B-CELL LYMPHOMA
  15. VINCRISTINE [Concomitant]
     Indication: DIFFUSE LARGE B-CELL LYMPHOMA
  16. DOXORUBICIN [Concomitant]
     Indication: DIFFUSE LARGE B-CELL LYMPHOMA
  17. ETOPOSIDE [Concomitant]
     Indication: DIFFUSE LARGE B-CELL LYMPHOMA RECURRENT
  18. CISPLATIN [Concomitant]
     Indication: DIFFUSE LARGE B-CELL LYMPHOMA RECURRENT
  19. METHYLPREDNISOLONE [Concomitant]
     Indication: DIFFUSE LARGE B-CELL LYMPHOMA RECURRENT
  20. CYTARABINE [Concomitant]
     Indication: DIFFUSE LARGE B-CELL LYMPHOMA RECURRENT
  21. FLUDARABINE [Concomitant]
     Indication: SURGICAL PRECONDITIONING
  22. MELPHALAN [Concomitant]
     Indication: SURGICAL PRECONDITIONING
  23. IBRITUMOMAB TIUXETAN [Concomitant]
     Indication: SURGICAL PRECONDITIONING

REACTIONS (8)
  - Alpha haemolytic streptococcal infection [Fatal]
  - Multi-organ failure [Unknown]
  - Acute graft versus host disease in skin [Unknown]
  - Cytomegalovirus infection [Recovered/Resolved]
  - Chronic graft versus host disease in skin [Unknown]
  - Sepsis [Unknown]
  - Chronic graft versus host disease in liver [Unknown]
  - Mucosal inflammation [Unknown]
